FAERS Safety Report 18608218 (Version 1)
Quarter: 2020Q4

REPORT INFORMATION
  Report Type: Report from Study
  Country: US (occurrence: US)
  Receive Date: 20201212
  Receipt Date: 20201212
  Transmission Date: 20210114
  Serious: No
  Sender: FDA-Public Use
  Company Number: NVSC2020US330784

PATIENT
  Sex: Female
  Weight: 53.06 kg

DRUGS (1)
  1. ENTRESTO [Suspect]
     Active Substance: SACUBITRIL\VALSARTAN
     Indication: CARDIAC FAILURE
     Dosage: 97103 MG
     Route: 065
     Dates: start: 202001

REACTIONS (1)
  - Weight decreased [Recovering/Resolving]

NARRATIVE: CASE EVENT DATE: 2020
